FAERS Safety Report 13500835 (Version 1)
Quarter: 2017Q2

REPORT INFORMATION
  Report Type: Spontaneous
  Country: US (occurrence: US)
  Receive Date: 20170501
  Receipt Date: 20170501
  Transmission Date: 20170830
  Serious: No
  Sender: FDA-Public Use
  Company Number: US-ROCHE-1825309

PATIENT
  Sex: Female

DRUGS (3)
  1. ESBRIET [Suspect]
     Active Substance: PIRFENIDONE
     Dosage: 3 CAPS TID
     Route: 048
  2. ESBRIET [Suspect]
     Active Substance: PIRFENIDONE
     Indication: IDIOPATHIC PULMONARY FIBROSIS
     Dosage: TID FOR 1 WEEK,2 CAPS TID FOR 1 WEEK, 3 CAPS TID
     Route: 048
     Dates: start: 20160727
  3. ESBRIET [Suspect]
     Active Substance: PIRFENIDONE
     Dosage: 2 CAPS TID FOR 1 WEEK
     Route: 048

REACTIONS (3)
  - Dizziness [Not Recovered/Not Resolved]
  - Headache [Not Recovered/Not Resolved]
  - Vomiting [Not Recovered/Not Resolved]
